FAERS Safety Report 4339344-0 (Version None)
Quarter: 2004Q2

REPORT INFORMATION
  Report Type: 
  Country: None (occurrence: None)
  Receive Date: 20040414
  Receipt Date: 20040414
  Transmission Date: 20050107
  Serious: Yes (Hospitalization, Disabling)
  Sender: FDA-Public Use
  Company Number: None

PATIENT
  Sex: Female
  Weight: 58.9676 kg

DRUGS (2)
  1. DECADRON [Suspect]
     Indication: BRAIN OEDEMA
  2. DECADRON [Suspect]
     Indication: RADIOTHERAPY TO BRAIN

REACTIONS (1)
  - ASEPTIC NECROSIS BONE [None]
